FAERS Safety Report 9036550 (Version 1)
Quarter: 2013Q1

REPORT INFORMATION
  Report Type: Report from Study
  Country: US (occurrence: US)
  Receive Date: 20130129
  Receipt Date: 20130129
  Transmission Date: 20140127
  Serious: Yes (Disabling)
  Sender: FDA-Public Use
  Company Number: US-ABBOTT-12P-163-0894553-00

PATIENT
  Sex: Female

DRUGS (4)
  1. HUMIRA 40 MG/0.8 ML PEN [Suspect]
     Indication: COSTOCHONDRITIS
     Dates: start: 20111027
  2. CELEBREX [Concomitant]
     Indication: COSTOCHONDRITIS
  3. ELAVIL [Concomitant]
     Indication: COSTOCHONDRITIS
  4. LYRICA [Concomitant]
     Indication: COSTOCHONDRITIS

REACTIONS (3)
  - Musculoskeletal chest pain [Not Recovered/Not Resolved]
  - Arthralgia [Not Recovered/Not Resolved]
  - Costochondritis [Not Recovered/Not Resolved]
